FAERS Safety Report 17237780 (Version 3)
Quarter: 2020Q1

REPORT INFORMATION
  Report Type: Spontaneous
  Country: FR (occurrence: FR)
  Receive Date: 20200106
  Receipt Date: 20200206
  Transmission Date: 20200409
  Serious: Yes (Death, Congenital Anomaly)
  Sender: FDA-Public Use
  Company Number: FR-MYLANLABS-2020M1001580

PATIENT
  Sex: Male

DRUGS (3)
  1. PAROXETINE. [Suspect]
     Active Substance: PAROXETINE
     Indication: DEPRESSION
     Dosage: 20 MILLIGRAM, QD
     Route: 064
     Dates: start: 20190501, end: 20190527
  2. ESCITALOPRAM [Suspect]
     Active Substance: ESCITALOPRAM OXALATE
     Indication: DEPRESSION
     Dosage: 20 MILLIGRAM, QD
     Route: 064
     Dates: start: 20181211, end: 20190501
  3. PAROXETINE. [Suspect]
     Active Substance: PAROXETINE
     Dosage: 10 MILLIGRAM, QD
     Route: 064
     Dates: start: 20190527

REACTIONS (2)
  - Congenital diaphragmatic hernia [Fatal]
  - Foetal exposure during pregnancy [Recovered/Resolved]

NARRATIVE: CASE EVENT DATE: 20190820
